FAERS Safety Report 6155729-4 (Version None)
Quarter: 2009Q2

REPORT INFORMATION
  Report Type: 
  Country: None (occurrence: None)
  Receive Date: 20090415
  Receipt Date: 20090407
  Transmission Date: 20091009
  Serious: Yes (Hospitalization)
  Sender: FDA-Public Use
  Company Number: B0568987A

PATIENT
  Age: 30 Year
  Sex: Male

DRUGS (4)
  1. RETROVIR [Suspect]
     Indication: HIV INFECTION
     Route: 048
     Dates: start: 19970501, end: 20010101
  2. EPIVIR [Suspect]
     Indication: HIV INFECTION
     Route: 048
     Dates: start: 20010101, end: 20020101
  3. HIVID [Suspect]
     Indication: HIV INFECTION
     Route: 065
     Dates: start: 19970501, end: 20010101
  4. VIDEX [Suspect]
     Indication: HIV INFECTION
     Route: 065
     Dates: start: 20010101, end: 20020101

REACTIONS (2)
  - AXONAL NEUROPATHY [None]
  - NEUROPATHY PERIPHERAL [None]
